FAERS Safety Report 23124513 (Version 1)
Quarter: 2023Q4

REPORT INFORMATION
  Report Type: Spontaneous
  Country: US (occurrence: None)
  Receive Date: 20231029
  Receipt Date: 20231029
  Transmission Date: 20240109
  Serious: Yes (Other)
  Sender: FDA-Public Use
  Company Number: None

PATIENT
  Age: 63 Year
  Sex: Female
  Weight: 49.5 kg

DRUGS (3)
  1. ALBUTEROL [Suspect]
     Active Substance: ALBUTEROL
     Indication: Asthma
     Dosage: OTHER QUANTITY : 200 PUFF(S);?FREQUENCY : AS NEEDED;?
     Route: 055
  2. NEBBULIZER [Concomitant]
  3. EPSOM SALT [Concomitant]
     Active Substance: MAGNESIUM SULFATE

REACTIONS (11)
  - Muscle spasms [None]
  - Insomnia [None]
  - Halo vision [None]
  - Secretion discharge [None]
  - Photopsia [None]
  - Cough [None]
  - Palpitations [None]
  - Insomnia [None]
  - Palpitations [None]
  - Insurance issue [None]
  - Vision blurred [None]

NARRATIVE: CASE EVENT DATE: 20090214
